FAERS Safety Report 12358526 (Version 1)
Quarter: 2016Q2

REPORT INFORMATION
  Report Type: Spontaneous
  Country: US (occurrence: None)
  Receive Date: 20160511
  Receipt Date: 20160511
  Transmission Date: 20160815
  Serious: Yes (Hospitalization)
  Sender: FDA-Public Use
  Company Number: None

PATIENT
  Age: 65 Year
  Sex: Female
  Weight: 92.99 kg

DRUGS (19)
  1. NEBULIZER SOLUTION PROVENTIL [Concomitant]
  2. LEVOTHYROXINE. [Concomitant]
     Active Substance: LEVOTHYROXINE
  3. INCRUSE ELLIPTA [Suspect]
     Active Substance: UMECLIDINIUM BROMIDE
     Indication: CHRONIC OBSTRUCTIVE PULMONARY DISEASE
     Dosage: 2 PUFFS TWICE DAILY
     Route: 048
  4. OMEGA-3 FISH OIL [Concomitant]
     Active Substance: FISH OIL\OMEGA-3 FATTY ACIDS
  5. MAGNESIUM [Concomitant]
     Active Substance: MAGNESIUM
  6. CALCIUM [Concomitant]
     Active Substance: CALCIUM
  7. LEVALBUTEROL. [Concomitant]
     Active Substance: LEVALBUTEROL
  8. DULARA [Concomitant]
  9. INCRUSE ELLIPTA [Suspect]
     Active Substance: UMECLIDINIUM BROMIDE
     Indication: ASTHMA
     Dosage: 2 PUFFS TWICE DAILY
     Route: 048
  10. XOPENEX RESCUE INHALER [Concomitant]
  11. BREO ELLIPTA [Suspect]
     Active Substance: FLUTICASONE FUROATE\VILANTEROL TRIFENATATE
     Indication: ASTHMA
     Dosage: 100MCG/25MCG 2 PUFFS TWICE DAILY METERED PUFFS MOUTH
     Route: 048
     Dates: start: 20160201, end: 20160218
  12. D-3 [Concomitant]
     Active Substance: CHOLECALCIFEROL
  13. ZINC [Concomitant]
     Active Substance: ZINC\ZINC CHLORIDE
  14. MULT-VITA [Concomitant]
  15. LOSARTAN. [Concomitant]
     Active Substance: LOSARTAN
  16. BREO ELLIPTA [Suspect]
     Active Substance: FLUTICASONE FUROATE\VILANTEROL TRIFENATATE
     Indication: CHRONIC OBSTRUCTIVE PULMONARY DISEASE
     Dosage: 100MCG/25MCG 2 PUFFS TWICE DAILY METERED PUFFS MOUTH
     Route: 048
     Dates: start: 20160201, end: 20160218
  17. NEBULIZER MACHINE/ALBUTEROL [Concomitant]
  18. VENTOLIN [Concomitant]
     Active Substance: ALBUTEROL SULFATE
  19. PREDNISONE. [Concomitant]
     Active Substance: PREDNISONE

REACTIONS (3)
  - Hypersensitivity [None]
  - Asthma [None]
  - Asphyxia [None]

NARRATIVE: CASE EVENT DATE: 20160319
